FAERS Safety Report 13547433 (Version 3)
Quarter: 2017Q4

REPORT INFORMATION
  Report Type: Report from Study
  Country: None (occurrence: RU)
  Receive Date: 20170515
  Receipt Date: 20171114
  Transmission Date: 20180320
  Serious: Yes (Other)
  Sender: FDA-Public Use
  Company Number: RU-ABBVIE-16P-251-1818174-00

PATIENT
  Age: 53 Year
  Sex: Male
  Weight: 85 kg

DRUGS (3)
  1. RIBAVIRIN. [Concomitant]
     Active Substance: RIBAVIRIN
     Indication: CHRONIC HEPATITIS C
     Dates: start: 20160531, end: 20160828
  2. ANAPRILIN [Concomitant]
     Active Substance: PROPRANOLOL HYDROCHLORIDE
     Indication: PORTAL HYPERTENSION
     Dosage: 10
     Dates: start: 20160202
  3. VIEKIRA PAK [Suspect]
     Active Substance: DASABUVIR\OMBITASVIR\PARITAPREVIR\RITONAVIR
     Indication: CHRONIC HEPATITIS C
     Dosage: 2 TABS (OMBIT12.5 MG + PARIT 75 MG + RITON50 MG)  QD; 1 TAB DASA 250 MG BID
     Route: 048
     Dates: start: 20160531, end: 20160822

REACTIONS (3)
  - Splenomegaly [Unknown]
  - Hepatocellular carcinoma [Not Recovered/Not Resolved]
  - Asthenia [Recovered/Resolved]

NARRATIVE: CASE EVENT DATE: 20160608
